FAERS Safety Report 8295400-6 (Version None)
Quarter: 2012Q2

REPORT INFORMATION
  Report Type: 
  Country: None (occurrence: None)
  Receive Date: 20120418
  Receipt Date: 20120410
  Transmission Date: 20120825
  Serious: Yes (Other)
  Sender: FDA-Public Use
  Company Number: US-BAYER-2012-036004

PATIENT
  Sex: Female

DRUGS (1)
  1. TRASYLOL [Suspect]
     Dosage: 10000 KIU, UNK
     Route: 042
     Dates: start: 20060526

REACTIONS (1)
  - RENAL IMPAIRMENT [None]
